FAERS Safety Report 5003219-4 (Version None)
Quarter: 2006Q2

REPORT INFORMATION
  Report Type: 
  Country: None (occurrence: None)
  Receive Date: 20060512
  Receipt Date: 20060501
  Transmission Date: 20061013
  Serious: Yes (Other)
  Sender: FDA-Public Use
  Company Number: 2006058543

PATIENT
  Sex: Male
  Weight: 77.1115 kg

DRUGS (7)
  1. ZMAX [Suspect]
     Indication: ILL-DEFINED DISORDER
     Dosage: 2 GRAM, 1 IN 1 TOTAL, ORAL
     Route: 048
     Dates: start: 20060430, end: 20060430
  2. ZITHROMAX [Suspect]
     Indication: BRONCHITIS
  3. ZITHROMAX [Suspect]
     Indication: SKIN INFECTION
  4. ZITHROMAX [Suspect]
     Indication: UPPER RESPIRATORY TRACT INFECTION
  5. ALL OTHER THERAPEUTIC PRODUCTS (ALL OTHER THERAPEUTIC PRODUCTS) [Concomitant]
  6. PRILOSEC [Concomitant]
  7. INSULIN [Concomitant]

REACTIONS (4)
  - BLOOD GLUCOSE DECREASED [None]
  - BLOOD GLUCOSE INCREASED [None]
  - DYSPEPSIA [None]
  - FLATULENCE [None]
